FAERS Safety Report 4303256-9 (Version None)
Quarter: 2004Q1

REPORT INFORMATION
  Report Type: 
  Country: None (occurrence: None)
  Receive Date: 20040224
  Receipt Date: 20040212
  Transmission Date: 20041129
  Serious: Yes (Hospitalization)
  Sender: FDA-Public Use
  Company Number: ES-BRISTOL-MYERS SQUIBB COMPANY-12509659

PATIENT
  Age: 65 Year
  Sex: Male

DRUGS (10)
  1. CEFEPIME FOR INJ [Suspect]
     Indication: PYREXIA
     Route: 042
  2. AMIKACIN SULFATE [Suspect]
     Indication: PYREXIA
     Route: 042
  3. CLOXACILLIN [Suspect]
     Indication: STAPHYLOCOCCAL INFECTION
     Route: 042
  4. CARMUSTINE [Concomitant]
  5. ETOPOSIDE [Concomitant]
  6. CYTARABINE [Concomitant]
  7. MELPHALAN [Concomitant]
  8. DOPAMINE HCL [Concomitant]
  9. DOBUTAMINE [Concomitant]
  10. FUROSEMIDE [Concomitant]

REACTIONS (5)
  - ATRIAL FIBRILLATION [None]
  - DEPRESSED LEVEL OF CONSCIOUSNESS [None]
  - HYPOTENSION [None]
  - RENAL FAILURE ACUTE [None]
  - STATUS EPILEPTICUS [None]
